FAERS Safety Report 12404790 (Version 2)
Quarter: 2016Q2

REPORT INFORMATION
  Report Type: Spontaneous
  Country: US (occurrence: US)
  Receive Date: 20160525
  Receipt Date: 20160601
  Transmission Date: 20160815
  Serious: Yes (Other)
  Sender: FDA-Public Use
  Company Number: US-MDT-ADR-2016-00944

PATIENT
  Age: 57 Year
  Sex: Female

DRUGS (14)
  1. DILAUDID [Suspect]
     Active Substance: HYDROMORPHONE HYDROCHLORIDE
     Route: 037
  2. BUPIVACAINE. [Suspect]
     Active Substance: BUPIVACAINE
     Route: 037
  3. BACLOFEN. [Suspect]
     Active Substance: BACLOFEN
  4. COMPOUNDED BACLOFEN [Suspect]
     Active Substance: BACLOFEN
     Route: 037
  5. MOVANTIK [Suspect]
     Active Substance: NALOXEGOL OXALATE
  6. PHENERGAN [Suspect]
     Active Substance: PROMETHAZINE HYDROCHLORIDE
  7. CELEBREX [Suspect]
     Active Substance: CELECOXIB
  8. CLONIDINE. [Suspect]
     Active Substance: CLONIDINE
     Route: 037
  9. MS CONTIN [Suspect]
     Active Substance: MORPHINE SULFATE
  10. PROCTOZONE [Suspect]
     Active Substance: HYDROCORTISONE
  11. VALIUM [Suspect]
     Active Substance: DIAZEPAM
  12. ROXICODONE [Suspect]
     Active Substance: OXYCODONE HYDROCHLORIDE
  13. LAMICTAL [Suspect]
     Active Substance: LAMOTRIGINE
  14. TREXIMET [Suspect]
     Active Substance: NAPROXEN SODIUM\SUMATRIPTAN SUCCINATE

REACTIONS (5)
  - Drug withdrawal syndrome [Unknown]
  - Hyperhidrosis [Unknown]
  - Vomiting [Unknown]
  - Nausea [Unknown]
  - Pain [Unknown]

NARRATIVE: CASE EVENT DATE: 20160513
